FAERS Safety Report 4308763-0 (Version None)
Quarter: 2004Q1

REPORT INFORMATION
  Report Type: 
  Country: None (occurrence: None)
  Receive Date: 20040227
  Receipt Date: 20040223
  Transmission Date: 20041129
  Serious: Yes (Other)
  Sender: FDA-Public Use
  Company Number: 54-2004-0001

PATIENT
  Age: 41 Year
  Sex: Female

DRUGS (3)
  1. PHOSLO [Suspect]
     Indication: MINERAL SUPPLEMENTATION
     Dosage: 1334 MG BID PO
     Route: 048
     Dates: start: 20020101, end: 20031001
  2. PRILOSEC [Concomitant]
  3. MULTI-VITAMINS [Concomitant]

REACTIONS (6)
  - ABDOMINAL PAIN UPPER [None]
  - AORTIC CALCIFICATION [None]
  - FATIGUE [None]
  - MEDICATION ERROR [None]
  - NAUSEA [None]
  - WEIGHT DECREASED [None]
